FAERS Safety Report 5684201-0 (Version None)
Quarter: 2008Q1

REPORT INFORMATION
  Report Type: 
  Country: None (occurrence: None)
  Receive Date: 20080327
  Receipt Date: 20080327
  Transmission Date: 20080703
  Serious: Yes (Other)
  Sender: FDA-Public Use
  Company Number: None

PATIENT
  Sex: Male
  Weight: 87.9978 kg

DRUGS (1)
  1. TRAMADOL HCL [Suspect]
     Indication: CROHN'S DISEASE
     Dosage: 50 MG.
     Dates: start: 20040101, end: 20080101

REACTIONS (5)
  - CONSTIPATION [None]
  - HYPERSENSITIVITY [None]
  - MALAISE [None]
  - PHARMACEUTICAL PRODUCT COMPLAINT [None]
  - THERAPEUTIC RESPONSE UNEXPECTED WITH DRUG SUBSTITUTION [None]
